FAERS Safety Report 7571351-7 (Version None)
Quarter: 2011Q2

REPORT INFORMATION
  Report Type: 
  Country: None (occurrence: None)
  Receive Date: 20110624
  Receipt Date: 20110620
  Transmission Date: 20111010
  Serious: Yes (Hospitalization)
  Sender: FDA-Public Use
  Company Number: B0727105A

PATIENT
  Age: 80 Year
  Sex: Female

DRUGS (3)
  1. BACTRIM [Suspect]
     Route: 065
     Dates: start: 20110216, end: 20110220
  2. AMOXICILLIN TRIHYDRATE [Suspect]
     Route: 048
     Dates: start: 20110216, end: 20110220
  3. ZOVIRAX [Suspect]
     Indication: ENCEPHALITIS HERPES
     Route: 048
     Dates: start: 20110216, end: 20110218

REACTIONS (1)
  - RENAL FAILURE ACUTE [None]
